FAERS Safety Report 9964584 (Version 1)
Quarter: 2014Q1

REPORT INFORMATION
  Report Type: Spontaneous
  Country: US (occurrence: US)
  Receive Date: 20140305
  Receipt Date: 20140305
  Transmission Date: 20141002
  Serious: No
  Sender: FDA-Public Use
  Company Number: US-AMGEN-USASP2013086831

PATIENT
  Age: 46 Year
  Sex: Female
  Weight: 97.05 kg

DRUGS (4)
  1. ENBREL [Suspect]
     Indication: PRODUCT USED FOR UNKNOWN INDICATION
     Dosage: 50 MG, QWK
     Route: 058
  2. POTASSIUM CHLORIDE [Concomitant]
     Dosage: 10 MEQ, UNK
  3. SAVELLA [Concomitant]
     Dosage: 25 MG, UNK
  4. MULTIVITAMIN                       /00097801/ [Concomitant]
     Dosage: UNK

REACTIONS (1)
  - Arthralgia [Unknown]
